FAERS Safety Report 5696248-9 (Version None)
Quarter: 2008Q2

REPORT INFORMATION
  Report Type: 
  Country: None (occurrence: None)
  Receive Date: 20080407
  Receipt Date: 20080327
  Transmission Date: 20081010
  Serious: Yes (Hospitalization)
  Sender: FDA-Public Use
  Company Number: HQWYE315607JUN04

PATIENT
  Sex: Female

DRUGS (3)
  1. PREMARIN [Suspect]
     Indication: MENOPAUSAL SYMPTOMS
     Dosage: NOT SPECIFIED
     Route: 048
     Dates: start: 19940101, end: 19960101
  2. PREMPHASE 14/14 [Suspect]
     Indication: MENOPAUSAL SYMPTOMS
     Dosage: NOT SPECIFIED
     Route: 048
     Dates: start: 19960101, end: 20010901
  3. PROVERA [Suspect]
     Indication: MENOPAUSAL SYMPTOMS
     Dosage: NOT SPECIFIED
     Route: 048
     Dates: start: 19870101, end: 19960101

REACTIONS (1)
  - BREAST CANCER METASTATIC [None]
